FAERS Safety Report 6143592-7 (Version None)
Quarter: 2009Q2

REPORT INFORMATION
  Report Type: 
  Country: None (occurrence: None)
  Receive Date: 20090403
  Receipt Date: 20090324
  Transmission Date: 20091009
  Serious: Yes (Death)
  Sender: FDA-Public Use
  Company Number: GB-PFIZER INC-2009189257

PATIENT

DRUGS (6)
  1. CHAMPIX [Suspect]
     Indication: SMOKING CESSATION THERAPY
     Route: 048
     Dates: start: 20090121, end: 20090301
  2. ACETYLSALICYLIC ACID [Concomitant]
  3. BENDROFLUAZIDE [Concomitant]
  4. NIFEDIPINE [Concomitant]
  5. PANTOPRAZOLE [Concomitant]
  6. SIMVASTATIN [Concomitant]

REACTIONS (1)
  - MYOCARDIAL INFARCTION [None]
